FAERS Safety Report 20833426 (Version 2)
Quarter: 2022Q2

REPORT INFORMATION
  Report Type: Spontaneous
  Country: DE (occurrence: DE)
  Receive Date: 20220516
  Receipt Date: 20220612
  Transmission Date: 20220721
  Serious: Yes (Other)
  Sender: FDA-Public Use
  Company Number: DE-JNJFOC-20220351183

PATIENT
  Age: 42 Year
  Sex: Female
  Weight: 120 kg

DRUGS (4)
  1. STELARA [Suspect]
     Active Substance: USTEKINUMAB
     Indication: Colitis ulcerative
     Route: 042
     Dates: start: 20211207
  2. STELARA [Suspect]
     Active Substance: USTEKINUMAB
     Indication: Arthropathy
  3. AZATHIOPRINE [Concomitant]
     Active Substance: AZATHIOPRINE
     Route: 065
     Dates: end: 202112
  4. DIENOGEST [Concomitant]
     Active Substance: DIENOGEST
     Indication: Endometritis
     Route: 065
     Dates: start: 2011

REACTIONS (10)
  - Haematochezia [Unknown]
  - Pain in extremity [Recovered/Resolved]
  - Conjunctivitis [Recovered/Resolved]
  - Fatigue [Unknown]
  - Nasopharyngitis [Recovered/Resolved]
  - Paraesthesia oral [Unknown]
  - Arthropathy [Unknown]
  - Vulvovaginal dryness [Recovering/Resolving]
  - C-reactive protein increased [Unknown]
  - White blood cell count increased [Unknown]

NARRATIVE: CASE EVENT DATE: 20211201
